FAERS Safety Report 16861019 (Version 3)
Quarter: 2020Q2

REPORT INFORMATION
  Report Type: Spontaneous
  Country: BR (occurrence: BR)
  Receive Date: 20190927
  Receipt Date: 20200630
  Transmission Date: 20200713
  Serious: Yes (Disabling, Other)
  Sender: FDA-Public Use
  Company Number: BR-SA-2019SA263604

PATIENT

DRUGS (7)
  1. CARVEDILOL. [Concomitant]
     Active Substance: CARVEDILOL
     Indication: CARDIAC DISORDER
     Dosage: UNK
  2. LOSARTAN. [Concomitant]
     Active Substance: LOSARTAN
     Dosage: UNK UNK, UNK
  3. AAS [Concomitant]
     Active Substance: ASPIRIN
     Dosage: UNK
  4. FABRAZYME [Suspect]
     Active Substance: AGALSIDASE BETA
     Indication: FABRY^S DISEASE
     Dosage: 1 DF, QOW (1 AMPOULE OF 35 ML)
     Route: 041
     Dates: start: 2013, end: 201912
  5. RENAGEL [SEVELAMER CARBONATE] [Concomitant]
     Dosage: UNK
  6. NORIPURUM [Concomitant]
     Active Substance: IRON POLYMALTOSE
     Indication: MINERAL SUPPLEMENTATION
     Dosage: UNK
  7. CALCITRIOL. [Concomitant]
     Active Substance: CALCITRIOL
     Dosage: UNK UNK, UNK

REACTIONS (14)
  - Skin discolouration [Unknown]
  - Drug hypersensitivity [Unknown]
  - Cerebral disorder [Unknown]
  - Vascular occlusion [Unknown]
  - Blood thyroid stimulating hormone increased [Unknown]
  - Limb injury [Unknown]
  - White blood cell count increased [Unknown]
  - Urinary retention [Unknown]
  - Blood potassium decreased [Unknown]
  - Anaemia [Recovered/Resolved]
  - Amputee [Unknown]
  - Blood glucose abnormal [Unknown]
  - Product dose omission [Unknown]
  - Tendonitis [Unknown]

NARRATIVE: CASE EVENT DATE: 2019
